FAERS Safety Report 10128660 (Version 1)
Quarter: 2014Q2

REPORT INFORMATION
  Report Type: Spontaneous
  Country: BE (occurrence: BE)
  Receive Date: 20140428
  Receipt Date: 20140428
  Transmission Date: 20141212
  Serious: Yes (Hospitalization)
  Sender: FDA-Public Use
  Company Number: BE-JNJFOC-20140415760

PATIENT
  Age: 90 Year
  Sex: Male

DRUGS (1)
  1. XARELTO [Suspect]
     Indication: PRODUCT USED FOR UNKNOWN INDICATION
     Route: 048

REACTIONS (1)
  - Pulmonary embolism [Unknown]
